FAERS Safety Report 4983681-3 (Version None)
Quarter: 2006Q1

REPORT INFORMATION
  Report Type: 
  Country: None (occurrence: None)
  Receive Date: 20060227
  Receipt Date: 20050118
  Transmission Date: 20060701
  Serious: Yes (Other)
  Sender: FDA-Public Use
  Company Number: WAES 0501USA02834

PATIENT
  Age: 76 Year
  Sex: Male
  Weight: 78.4723 kg

DRUGS (3)
  1. ZOCOR [Suspect]
     Indication: BLOOD CHOLESTEROL INCREASED
     Dosage: 40 MG, DAILY, PO
     Route: 048
     Dates: end: 20050111
  2. BIAXIN XL [Suspect]
     Indication: SINUSITIS
     Dosage: 1000 MG, DAILY, PO
     Route: 048
     Dates: start: 20041223
  3. LEVAQUIN [Concomitant]

REACTIONS (1)
  - RHABDOMYOLYSIS [None]
